FAERS Safety Report 11020330 (Version 4)
Quarter: 2016Q2

REPORT INFORMATION
  Report Type: Report from Study
  Country: GB (occurrence: GB)
  Receive Date: 20150413
  Receipt Date: 20160421
  Transmission Date: 20160815
  Serious: Yes (Other)
  Sender: FDA-Public Use
  Company Number: GB-AMGEN-2014-2523

PATIENT
  Age: 81 Year
  Sex: Female
  Weight: 54.5 kg

DRUGS (18)
  1. MELPHALAN [Suspect]
     Active Substance: MELPHALAN
     Indication: PLASMA CELL MYELOMA
     Dosage: 10 MG, PER CHEMO REGIM
     Route: 048
     Dates: start: 20140225, end: 20140816
  2. DOMPERIDONE [Concomitant]
     Active Substance: DOMPERIDONE
     Indication: PROPHYLAXIS OF NAUSEA AND VOMITING
     Dosage: 10 MG, AS NECESSARY
     Route: 048
     Dates: start: 20140225
  3. NASEPTIN [Concomitant]
     Active Substance: CHLORHEXIDINE HYDROCHLORIDE\NEOMYCIN SULFATE
     Indication: EPISTAXIS
     Dosage: UNK UNK, BID
     Route: 061
     Dates: start: 20140423
  4. GLYCERYL TRINITRATE [Concomitant]
     Active Substance: NITROGLYCERIN
     Indication: ANGINA PECTORIS
  5. CARFILZOMIB [Suspect]
     Active Substance: CARFILZOMIB
     Indication: PLASMA CELL MYELOMA
     Dosage: 36 MG/M2, PER CHEMO REGIM
     Route: 042
     Dates: start: 20140225, end: 20140911
  6. NYSTATIN. [Concomitant]
     Active Substance: NYSTATIN
     Indication: ANTIFUNGAL PROPHYLAXIS
     Dosage: 1 ML, QID
     Route: 048
     Dates: start: 20140225
  7. ONDANSETRON [Concomitant]
     Active Substance: ONDANSETRON
     Indication: PREMEDICATION
     Dosage: 8 MG, AS NECESSARY
     Route: 042
     Dates: start: 20140225
  8. TIMOLOL. [Concomitant]
     Active Substance: TIMOLOL
     Indication: ANGINA PECTORIS
  9. GLYCERYL TRINITRATE [Concomitant]
     Active Substance: NITROGLYCERIN
     Indication: PROPHYLAXIS
     Dosage: 400 MUG, AS NECESSARY
     Route: 060
     Dates: start: 20071015
  10. GLUCOSE [Concomitant]
     Active Substance: DEXTROSE
     Indication: PREMEDICATION
     Dosage: 1000 ML, AS NECESSARY
     Route: 042
     Dates: start: 20140225
  11. ASPIRIN. [Concomitant]
     Active Substance: ASPIRIN
     Indication: EPISTAXIS
     Dosage: 75 MG, QD
     Route: 048
     Dates: start: 20140423
  12. TIMOLOL. [Concomitant]
     Active Substance: TIMOLOL
     Indication: PROPHYLAXIS
     Dosage: 10 MG, BID
     Route: 048
     Dates: start: 20020508
  13. APREPITANT. [Concomitant]
     Active Substance: APREPITANT
     Indication: VOMITING
  14. PREDNISONE. [Suspect]
     Active Substance: PREDNISONE
     Indication: PLASMA CELL MYELOMA
     Dosage: 100 MG, PER CHEMO REGIM
     Route: 048
     Dates: start: 20140225, end: 20140816
  15. LOPERAMIDE [Concomitant]
     Active Substance: LOPERAMIDE
     Indication: DIARRHOEA
     Dosage: 2 MG, AS NECESSARY
     Route: 048
     Dates: start: 20140225
  16. SODIUM CHLORIDE. [Concomitant]
     Active Substance: SODIUM CHLORIDE
     Indication: PREMEDICATION
     Dosage: 500 ML, AS NECESSARY
     Route: 042
     Dates: start: 20140225
  17. APREPITANT. [Concomitant]
     Active Substance: APREPITANT
     Indication: NAUSEA
     Dosage: 80-125 MG, AS NECESSARY
     Route: 048
     Dates: start: 20140730
  18. ACICLOVIR [Concomitant]
     Active Substance: ACYCLOVIR
     Indication: ANTIVIRAL PROPHYLAXIS
     Dosage: 200 MG, TID
     Route: 048
     Dates: start: 20140317

REACTIONS (1)
  - Atrial fibrillation [Recovered/Resolved]

NARRATIVE: CASE EVENT DATE: 20141001
